FAERS Safety Report 7738224-8 (Version None)
Quarter: 2011Q3

REPORT INFORMATION
  Report Type: 
  Country: None (occurrence: None)
  Receive Date: 20110908
  Receipt Date: 20110906
  Transmission Date: 20111222
  Serious: Yes (Hospitalization, Other)
  Sender: FDA-Public Use
  Company Number: US-PFIZER INC-2011147884

PATIENT
  Sex: Male

DRUGS (2)
  1. CHANTIX [Suspect]
     Indication: SMOKING CESSATION THERAPY
     Dosage: 1 MG, UNK
     Dates: start: 20080701, end: 20081101
  2. ACETAMINOPHEN AND HYDROCODONE BITARTRATE [Concomitant]
     Indication: PAIN
     Dosage: UNK
     Dates: start: 20010801, end: 20090601

REACTIONS (11)
  - LIVER INJURY [None]
  - IMPAIRED DRIVING ABILITY [None]
  - ABNORMAL DREAMS [None]
  - BLISTER [None]
  - INTENTIONAL OVERDOSE [None]
  - EMOTIONAL DISTRESS [None]
  - SUICIDE ATTEMPT [None]
  - SUICIDAL IDEATION [None]
  - MENTAL DISORDER [None]
  - AGGRESSION [None]
  - ABNORMAL BEHAVIOUR [None]
